FAERS Safety Report 15281140 (Version 3)
Quarter: 2020Q4

REPORT INFORMATION
  Report Type: Spontaneous
  Country: JP (occurrence: JP)
  Receive Date: 20180815
  Receipt Date: 20201030
  Transmission Date: 20210113
  Serious: Yes (Hospitalization)
  Sender: FDA-Public Use
  Company Number: JP-EISAI MEDICAL RESEARCH-EC-2018-042263

PATIENT
  Age: 78 Year
  Sex: Female
  Weight: 37 kg

DRUGS (2)
  1. LENVIMA [Suspect]
     Active Substance: LENVATINIB
     Indication: HEPATOCELLULAR CARCINOMA
     Route: 048
     Dates: start: 20180607, end: 20180806
  2. LENVIMA [Suspect]
     Active Substance: LENVATINIB
     Route: 048
     Dates: start: 201808, end: 201808

REACTIONS (5)
  - Decreased appetite [Recovering/Resolving]
  - Hypothyroidism [Recovering/Resolving]
  - Fatigue [Recovering/Resolving]
  - Malaise [Recovering/Resolving]
  - Dysphonia [Recovering/Resolving]

NARRATIVE: CASE EVENT DATE: 20180616
